FAERS Safety Report 6198286-9 (Version None)
Quarter: 2009Q2

REPORT INFORMATION
  Report Type: 
  Country: None (occurrence: None)
  Receive Date: 20090519
  Receipt Date: 20090504
  Transmission Date: 20091009
  Serious: Yes (Hospitalization)
  Sender: FDA-Public Use
  Company Number: SPV1-2009-00937

PATIENT
  Age: 3 Year
  Sex: Male

DRUGS (2)
  1. ELAPRASE [Suspect]
     Indication: MUCOPOLYSACCHARIDOSIS II
     Dosage: 0.5 MG/KG,  IV DRIP
     Route: 041
     Dates: start: 20080826
  2. CAPTOPRIL [Concomitant]

REACTIONS (1)
  - HAEMATOMA [None]
